FAERS Safety Report 24339548 (Version 1)
Quarter: 2024Q3

REPORT INFORMATION
  Report Type: Spontaneous
  Country: US (occurrence: None)
  Receive Date: 20240918
  Receipt Date: 20240918
  Transmission Date: 20241017
  Serious: Yes (Other)
  Sender: Public
  Company Number: None

PATIENT
  Age: 70 Year
  Sex: Male
  Weight: 84.15 kg

DRUGS (2)
  1. VYNDAQEL [Suspect]
     Active Substance: TAFAMIDIS MEGLUMINE
     Indication: Cardiac amyloidosis
     Dosage: FREQUENCY : DAILY;?
     Route: 048
     Dates: start: 20240906, end: 20240911
  2. Vyndaqel 80mg [Concomitant]
     Dates: start: 20240906, end: 20240911

REACTIONS (4)
  - Rash vesicular [None]
  - Eschar [None]
  - Scab [None]
  - Rash [None]

NARRATIVE: CASE EVENT DATE: 20240906
